FAERS Safety Report 19144764 (Version 1)
Quarter: 2021Q2

REPORT INFORMATION
  Report Type: Spontaneous
  Country: US (occurrence: US)
  Receive Date: 20210416
  Receipt Date: 20210416
  Transmission Date: 20210717
  Serious: Yes (Hospitalization)
  Sender: FDA-Public Use
  Company Number: None

PATIENT
  Age: 56 Year
  Sex: Female
  Weight: 71 kg

DRUGS (10)
  1. TAXOTERE [Suspect]
     Active Substance: DOCETAXEL
     Dates: end: 20210331
  2. HERCEPTIN [Suspect]
     Active Substance: TRASTUZUMAB
     Dates: end: 20210331
  3. OLANZAPINE. [Concomitant]
     Active Substance: OLANZAPINE
  4. CLONAZEPAM. [Concomitant]
     Active Substance: CLONAZEPAM
  5. HYDROCHLOROTHIAZIDE?LISINOPRIL [Concomitant]
     Active Substance: HYDROCHLOROTHIAZIDE\LISINOPRIL
  6. IBUPROFEN. [Concomitant]
     Active Substance: IBUPROFEN
  7. FAMOTIDINE. [Concomitant]
     Active Substance: FAMOTIDINE
  8. XARELTO [Concomitant]
     Active Substance: RIVAROXABAN
  9. ESCITALOPRAM [Concomitant]
     Active Substance: ESCITALOPRAM OXALATE
  10. PERTUZUMAB. [Suspect]
     Active Substance: PERTUZUMAB
     Dates: end: 20210331

REACTIONS (6)
  - Gastrointestinal mucosal disorder [None]
  - Chest pain [None]
  - Nausea [None]
  - Headache [None]
  - Abdominal pain upper [None]
  - Anxiety [None]

NARRATIVE: CASE EVENT DATE: 20210405
